FAERS Safety Report 15591236 (Version 2)
Quarter: 2018Q4

REPORT INFORMATION
  Report Type: Spontaneous
  Country: US (occurrence: US)
  Receive Date: 20181107
  Receipt Date: 20181116
  Transmission Date: 20190205
  Serious: Yes (Hospitalization)
  Sender: FDA-Public Use
  Company Number: US-LANNETT COMPANY, INC.-US-2018LAN001271

PATIENT

DRUGS (6)
  1. REMODULIN [Suspect]
     Active Substance: TREPROSTINIL
     Dosage: UNK
     Route: 058
     Dates: start: 2018
  2. REMODULIN [Suspect]
     Active Substance: TREPROSTINIL
     Indication: PULMONARY ARTERIAL HYPERTENSION
     Dosage: 0.012 ?G/KG, UNK
     Route: 058
     Dates: start: 20180710
  3. ZAROXOLYN [Suspect]
     Active Substance: METOLAZONE
     Indication: PRODUCT USED FOR UNKNOWN INDICATION
     Dosage: UNK
     Route: 065
     Dates: start: 201809
  4. DILTIAZEM. [Concomitant]
     Active Substance: DILTIAZEM
     Indication: PRODUCT USED FOR UNKNOWN INDICATION
     Dosage: UNK
  5. LOPERAMIDE [Suspect]
     Active Substance: LOPERAMIDE
     Indication: PRODUCT USED FOR UNKNOWN INDICATION
     Dosage: UNK
     Route: 065
  6. REMODULIN [Suspect]
     Active Substance: TREPROSTINIL
     Dosage: 0.014 ?G/KG, UNK
     Route: 058
     Dates: start: 2018

REACTIONS (25)
  - Peripheral swelling [Unknown]
  - Hot flush [Unknown]
  - Non-cardiac chest pain [Unknown]
  - Insomnia [Unknown]
  - Pulmonary arterial pressure abnormal [Unknown]
  - Muscular weakness [Unknown]
  - Weight decreased [Unknown]
  - Palpitations [Unknown]
  - Brain natriuretic peptide increased [Unknown]
  - Gout [Unknown]
  - Nasopharyngitis [Unknown]
  - Diarrhoea [Unknown]
  - Constipation [Unknown]
  - Adverse drug reaction [Unknown]
  - Stress [Unknown]
  - Cardiac failure congestive [Unknown]
  - Feeding disorder [Unknown]
  - Back injury [Unknown]
  - Cough [Unknown]
  - Pain [Unknown]
  - Throat irritation [Unknown]
  - Pneumonia [Unknown]
  - Hypotension [Unknown]
  - Myalgia [Unknown]
  - Feeling abnormal [Unknown]

NARRATIVE: CASE EVENT DATE: 2018
